FAERS Safety Report 26186813 (Version 1)
Quarter: 2025Q4

REPORT INFORMATION
  Report Type: Spontaneous
  Country: US (occurrence: None)
  Receive Date: 20251220
  Receipt Date: 20251220
  Transmission Date: 20260118
  Serious: Yes (Hospitalization)
  Sender: FDA-CTU
  Company Number: None

PATIENT
  Sex: Male

DRUGS (2)
  1. INLYTA [Suspect]
     Active Substance: AXITINIB
     Indication: Renal cancer
     Dosage: FREQUENCY : TWICE A DAY;?FREQ: TAKE 1 TABLET (5 MG TOTAL) BY MOUTH 2 TIMES A DAY. TAKE WITH QR WITHOUT FOOD. SWALLOW WHOLE ?WITH A FULL GLASS OF WATER.
     Route: 048
     Dates: start: 20251209
  2. LOSARTAN POTASSIUM [Concomitant]
     Active Substance: LOSARTAN POTASSIUM

REACTIONS (3)
  - Blood pressure increased [None]
  - Nausea [None]
  - Chest pain [None]
